FAERS Safety Report 5487214-7 (Version None)
Quarter: 2007Q4

REPORT INFORMATION
  Report Type: 
  Country: None (occurrence: None)
  Receive Date: 20071016
  Receipt Date: 20071003
  Transmission Date: 20080405
  Serious: Yes (Hospitalization, Other)
  Sender: FDA-Public Use
  Company Number: ES-ABBOTT-07P-144-0419365-00

PATIENT
  Age: 30 Year
  Sex: Female
  Weight: 50 kg

DRUGS (2)
  1. HUMIRA [Suspect]
     Indication: CROHN'S DISEASE
     Route: 058
     Dates: start: 20070924, end: 20070924
  2. AZATHIOPRINE [Suspect]
     Indication: CROHN'S DISEASE
     Route: 048
     Dates: start: 20070919, end: 20071002

REACTIONS (6)
  - APHTHOUS STOMATITIS [None]
  - DYSPHAGIA [None]
  - NEUTROPENIA [None]
  - OEDEMA MOUTH [None]
  - ORAL PAIN [None]
  - PYREXIA [None]
